FAERS Safety Report 4756469-6 (Version None)
Quarter: 2005Q3

REPORT INFORMATION
  Report Type: 
  Country: None (occurrence: None)
  Receive Date: 20050830
  Receipt Date: 20050707
  Transmission Date: 20060218
  Serious: No
  Sender: FDA-Public Use
  Company Number: US-GLAXOSMITHKLINE-A0565331A

PATIENT
  Age: 49 Year
  Sex: Female

DRUGS (6)
  1. WELLBUTRIN XL [Suspect]
     Indication: DEPRESSION
     Dosage: 300MG PER DAY
     Route: 048
     Dates: start: 20050607
  2. ZYRTEC [Concomitant]
  3. CRESTOR [Concomitant]
  4. NASACORT [Concomitant]
  5. VITAMINS [Concomitant]
  6. FOLIC ACID [Concomitant]

REACTIONS (2)
  - AGITATION [None]
  - PERSONALITY CHANGE [None]
